FAERS Safety Report 10803712 (Version 2)
Quarter: 2015Q2

REPORT INFORMATION
  Report Type: Report from Study
  Country: FR (occurrence: FR)
  Receive Date: 20150217
  Receipt Date: 20150409
  Transmission Date: 20150821
  Serious: Yes (Hospitalization)
  Sender: FDA-Public Use
  Company Number: FR-GLAXOSMITHKLINE-FR2015GSK016738

PATIENT
  Age: 77 Year
  Sex: Female
  Weight: 58 kg

DRUGS (13)
  1. PAZOPANIB [Suspect]
     Active Substance: PAZOPANIB
     Indication: THYROID NEOPLASM
     Dosage: 800 MG, QD
     Route: 048
     Dates: start: 20140419, end: 20150203
  2. ESOMEPRAZOLE [Concomitant]
     Active Substance: ESOMEPRAZOLE
     Dosage: 20 MG, QD
  3. IRON [Concomitant]
     Active Substance: IRON
  4. CANDESARTAN [Concomitant]
     Active Substance: CANDESARTAN
     Dosage: 16 MG, QD
  5. CALCIUM [Concomitant]
     Active Substance: CALCIUM
     Dosage: 1 DF, QD
  6. PAZOPANIB [Suspect]
     Active Substance: PAZOPANIB
     Dosage: 800 MG, QD
     Route: 048
     Dates: start: 20150207
  7. VITAMIN B1 [Concomitant]
     Active Substance: THIAMINE HYDROCHLORIDE
  8. LEVOTHYROXIN [Concomitant]
     Active Substance: LEVOTHYROXINE
     Dosage: 175 UG, QD
  9. PARACETAMOL [Concomitant]
     Active Substance: ACETAMINOPHEN
  10. VITAMIN B6 [Concomitant]
     Active Substance: PYRIDOXINE HYDROCHLORIDE
  11. VITAMIN B12 [Concomitant]
     Active Substance: CYANOCOBALAMIN
  12. DENOSUMAB [Concomitant]
     Active Substance: DENOSUMAB
  13. TINZAPARIN [Concomitant]
     Active Substance: TINZAPARIN

REACTIONS (1)
  - Anaemia [Recovered/Resolved with Sequelae]

NARRATIVE: CASE EVENT DATE: 20150204
